FAERS Safety Report 19792413 (Version 2)
Quarter: 2021Q4

REPORT INFORMATION
  Report Type: Spontaneous
  Country: US (occurrence: US)
  Receive Date: 20210906
  Receipt Date: 20211108
  Transmission Date: 20220303
  Serious: Yes (Other)
  Sender: FDA-Public Use
  Company Number: US-AMGEN-USASP2021134341

PATIENT
  Age: 53 Year
  Sex: Male

DRUGS (3)
  1. PANITUMUMAB [Suspect]
     Active Substance: PANITUMUMAB
     Indication: Colon cancer metastatic
     Dosage: UNK
     Route: 065
     Dates: start: 20150107, end: 20170621
  2. IRINOTECAN [Concomitant]
     Active Substance: IRINOTECAN
     Indication: Colon cancer metastatic
     Dosage: UNK
     Route: 065
     Dates: start: 20130225, end: 20170621
  3. ZOMETA [Concomitant]
     Active Substance: ZOLEDRONIC ACID
     Indication: Colon cancer metastatic
     Dosage: UNK
     Dates: start: 20120409, end: 2016

REACTIONS (3)
  - Colon cancer metastatic [Recovered/Resolved]
  - Hepatic cancer metastatic [Recovered/Resolved]
  - Off label use [Unknown]

NARRATIVE: CASE EVENT DATE: 20150107
